FAERS Safety Report 15243591 (Version 1)
Quarter: 2018Q3

REPORT INFORMATION
  Report Type: Spontaneous
  Country: US (occurrence: US)
  Receive Date: 20180806
  Receipt Date: 20180806
  Transmission Date: 20181010
  Serious: No
  Sender: FDA-Public Use
  Company Number: US-FERRINGPH-2017FE03132

PATIENT
  Age: 26 Year
  Sex: Female
  Weight: 86.17 kg

DRUGS (2)
  1. ENDOMETRIN [Suspect]
     Active Substance: PROGESTERONE
     Indication: PREGNANCY
     Dosage: UNK, 2 TIMES DAILY
     Route: 067
     Dates: start: 20170615
  2. PRENATAL VITAMINS                  /02014401/ [Concomitant]
     Active Substance: VITAMINS
     Indication: PRODUCT USED FOR UNKNOWN INDICATION
     Route: 065

REACTIONS (2)
  - Off label use [Unknown]
  - Vaginal discharge [Not Recovered/Not Resolved]

NARRATIVE: CASE EVENT DATE: 20170615
